FAERS Safety Report 9057704 (Version 1)
Quarter: 2013Q1

REPORT INFORMATION
  Report Type: Spontaneous
  Country: DK (occurrence: None)
  Receive Date: 20130117
  Receipt Date: 20130117
  Transmission Date: 20140127
  Serious: Yes (Hospitalization)
  Sender: FDA-Public Use
  Company Number: 2013MA000146

PATIENT
  Age: 4 Year
  Sex: Female

DRUGS (1)
  1. RAMIPRIL [Suspect]
     Route: 048
     Dates: start: 20121108, end: 20121108

REACTIONS (4)
  - Abdominal pain [None]
  - Overdose [None]
  - Medication error [None]
  - Accidental exposure to product by child [None]
